FAERS Safety Report 9902905 (Version 1)
Quarter: 2014Q1

REPORT INFORMATION
  Report Type: Spontaneous
  Country: US (occurrence: US)
  Receive Date: 20140217
  Receipt Date: 20140217
  Transmission Date: 20141002
  Serious: Yes (Other)
  Sender: FDA-Public Use
  Company Number: PHHY2014US017785

PATIENT
  Age: 69 Year
  Sex: Female

DRUGS (6)
  1. LETROZOLE [Suspect]
     Indication: BREAST CANCER METASTATIC
  2. TAMOXIFEN [Suspect]
     Indication: BREAST CANCER METASTATIC
  3. EXEMESTANE [Suspect]
     Indication: BREAST CANCER METASTATIC
  4. CAPECITABINE [Suspect]
     Indication: BREAST CANCER METASTATIC
  5. PACLITAXEL [Suspect]
     Indication: BREAST CANCER METASTATIC
  6. LIPOSOMAL DOXORUBICIN HYDROCHLORIDE [Suspect]
     Indication: BREAST CANCER METASTATIC

REACTIONS (2)
  - Breast cancer metastatic [Unknown]
  - Malignant neoplasm progression [Unknown]
